FAERS Safety Report 5089355-5 (Version None)
Quarter: 2006Q3

REPORT INFORMATION
  Report Type: 
  Country: None (occurrence: None)
  Receive Date: 20060825
  Receipt Date: 20060815
  Transmission Date: 20061208
  Serious: Yes (Other)
  Sender: FDA-Public Use
  Company Number: GB-ABBOTT-06P-163-0341275-00

PATIENT
  Sex: Female

DRUGS (4)
  1. NORVIR [Suspect]
     Indication: SYSTEMIC ANTIVIRAL TREATMENT
     Route: 048
  2. ABACAVIR SULFATE [Suspect]
     Indication: SYSTEMIC ANTIVIRAL TREATMENT
     Route: 048
  3. TENOFOVIR DISOPROXIL FUMARATE [Suspect]
     Indication: SYSTEMIC ANTIVIRAL TREATMENT
     Route: 048
  4. ATAZANAVIR [Suspect]
     Indication: SYSTEMIC ANTIVIRAL TREATMENT
     Route: 048

REACTIONS (2)
  - HAEMORRHAGE [None]
  - PREMATURE SEPARATION OF PLACENTA [None]
